FAERS Safety Report 18961739 (Version 1)
Quarter: 2021Q1

REPORT INFORMATION
  Report Type: Spontaneous
  Country: DK (occurrence: DK)
  Receive Date: 20210303
  Receipt Date: 20210303
  Transmission Date: 20210420
  Serious: Yes (Hospitalization)
  Sender: FDA-Public Use
  Company Number: DK-TEVA-2021-DK-1884633

PATIENT
  Age: 82 Year
  Sex: Female

DRUGS (8)
  1. RELTEBON DEPOT [Suspect]
     Active Substance: OXYCODONE HYDROCHLORIDE
     Indication: PAIN
     Dosage: DOSAGE: 20 MG MORNING AND MIDDAY. 10 MG EVENING.?STRENGTH: 5 MG
     Route: 048
     Dates: start: 20201204
  2. GABARATIO [Concomitant]
     Active Substance: GABAPENTIN
     Indication: NEURALGIA
     Dates: start: 20201202
  3. OXYCODONE [Concomitant]
     Active Substance: OXYCODONE
     Indication: PAIN
     Dates: start: 20201202
  4. TOLTERODINTARTRAT ^TEVA^ [Concomitant]
     Indication: POLLAKIURIA
     Dates: start: 20200805
  5. PROLIA [Concomitant]
     Active Substance: DENOSUMAB
     Indication: OSTEOPOROSIS
     Dates: start: 20190621
  6. LACTULOSE ^MIP^ [Concomitant]
     Indication: CONSTIPATION
     Dates: start: 20201217
  7. PARACETAMOL [Concomitant]
     Active Substance: ACETAMINOPHEN
     Indication: PAIN
     Dates: start: 20200805
  8. HJERTEMAGNYL [Concomitant]
     Indication: ANTICOAGULANT THERAPY
     Dates: start: 20200805

REACTIONS (3)
  - Decreased appetite [Unknown]
  - Speech disorder [Unknown]
  - Abnormal behaviour [Unknown]

NARRATIVE: CASE EVENT DATE: 20200123
